FAERS Safety Report 12081344 (Version 2)
Quarter: 2016Q1

REPORT INFORMATION
  Report Type: Spontaneous
  Country: BR (occurrence: BR)
  Receive Date: 20160216
  Receipt Date: 20160224
  Transmission Date: 20160526
  Serious: No
  Sender: FDA-Public Use
  Company Number: BR-PFIZER INC-2016086818

PATIENT
  Age: 71 Year
  Sex: Male

DRUGS (6)
  1. PRISTIQ EXTENDED RELEASE [Suspect]
     Active Substance: DESVENLAFAXINE SUCCINATE
     Indication: DEPRESSION
     Dosage: 100 MG, UNK
     Dates: start: 201512
  2. AMLODIPINE [Concomitant]
     Active Substance: AMLODIPINE BESYLATE
  3. PRISTIQ EXTENDED RELEASE [Suspect]
     Active Substance: DESVENLAFAXINE SUCCINATE
     Dosage: 1 TABLET 200 MG PER DAY
     Dates: start: 201512
  4. ALPRAZOLAM. [Concomitant]
     Active Substance: ALPRAZOLAM
  5. SOTAHEXAL [Concomitant]
     Active Substance: SOTALOL
     Dosage: UNK
     Dates: start: 201509
  6. QUETIAPINE [Concomitant]
     Active Substance: QUETIAPINE
     Indication: SLEEP DISORDER

REACTIONS (1)
  - Drug ineffective [Not Recovered/Not Resolved]

NARRATIVE: CASE EVENT DATE: 201512
